FAERS Safety Report 4988085-5 (Version None)
Quarter: 2006Q2

REPORT INFORMATION
  Report Type: 
  Country: None (occurrence: None)
  Receive Date: 20060425
  Receipt Date: 20060414
  Transmission Date: 20061013
  Serious: Yes (Hospitalization)
  Sender: FDA-Public Use
  Company Number: 200610523BYL

PATIENT
  Age: 24 Month
  Sex: Female
  Weight: 12 kg

DRUGS (6)
  1. ASPIRIN [Suspect]
     Indication: KAWASAKI'S DISEASE
     Dosage: 1080 MG, TOTAL DAILY, ORAL
     Route: 048
     Dates: start: 20060311, end: 20060324
  2. IMMUNE GLOBULIN (HUMAN) [Suspect]
     Indication: KAWASAKI'S DISEASE
     Dosage: 12 G, TOTAL DAILY, INTRAVENOUS DRIP
     Route: 041
     Dates: start: 20060311, end: 20060314
  3. MIRACLID [Concomitant]
  4. ANTHROBIN P [Concomitant]
  5. ZANTAC [Concomitant]
  6. SOLU-MEDROL [Concomitant]

REACTIONS (2)
  - PLATELET COUNT DECREASED [None]
  - RASH [None]
